FAERS Safety Report 16359297 (Version 2)
Quarter: 2019Q3

REPORT INFORMATION
  Report Type: Spontaneous
  Country: JP (occurrence: JP)
  Receive Date: 20190528
  Receipt Date: 20190719
  Transmission Date: 20191004
  Serious: Yes (Other)
  Sender: FDA-Public Use
  Company Number: JP-CONCORDIA PHARMACEUTICALS INC.-GSH201905-001454

PATIENT
  Age: 41 Year
  Sex: Female

DRUGS (5)
  1. PLAQUENIL [Suspect]
     Active Substance: HYDROXYCHLOROQUINE SULFATE
     Indication: NEPHROPATHY
  2. PLAQUENIL [Suspect]
     Active Substance: HYDROXYCHLOROQUINE SULFATE
     Indication: SYSTEMIC LUPUS ERYTHEMATOSUS
     Dosage: DAILY DOSE: UNKNOWN
     Route: 048
     Dates: start: 201902, end: 201905
  3. PREDNISOLONE. [Concomitant]
     Active Substance: PREDNISOLONE
     Indication: PRODUCT USED FOR UNKNOWN INDICATION
  4. MYCOPHENOLATE MOFETIL. [Concomitant]
     Active Substance: MYCOPHENOLATE MOFETIL
     Indication: PRODUCT USED FOR UNKNOWN INDICATION
  5. TACROLIMUS. [Concomitant]
     Active Substance: TACROLIMUS
     Indication: PRODUCT USED FOR UNKNOWN INDICATION

REACTIONS (2)
  - Visual acuity reduced [Recovering/Resolving]
  - Rhegmatogenous retinal detachment [Recovering/Resolving]

NARRATIVE: CASE EVENT DATE: 20190514
